FAERS Safety Report 4587431-4 (Version None)
Quarter: 2005Q1

REPORT INFORMATION
  Report Type: 
  Country: None (occurrence: None)
  Receive Date: 20050218
  Receipt Date: 20041007
  Transmission Date: 20050727
  Serious: Yes (Hospitalization)
  Sender: FDA-Public Use
  Company Number: CA-ABBOTT-04P-028-0276485-00

PATIENT
  Sex: Male

DRUGS (4)
  1. HUMIRA [Suspect]
     Indication: RHEUMATOID ARTHRITIS
     Route: 058
     Dates: start: 20001122
  2. BETAMETHASONE VALERATE [Concomitant]
     Indication: PSORIASIS
     Route: 061
     Dates: start: 19980101
  3. PROCTOFOAM HC [Concomitant]
     Indication: PSORIASIS
     Route: 061
     Dates: start: 20000417
  4. PREDNISONE [Concomitant]
     Indication: RHEUMATOID ARTHRITIS
     Route: 048
     Dates: start: 20040324, end: 20041001

REACTIONS (1)
  - PLEURAL INFECTION [None]
